FAERS Safety Report 5476765-7 (Version None)
Quarter: 2007Q4

REPORT INFORMATION
  Report Type: 
  Country: None (occurrence: None)
  Receive Date: 20071004
  Receipt Date: 20070926
  Transmission Date: 20080405
  Serious: Yes (Hospitalization)
  Sender: FDA-Public Use
  Company Number: JP-JNJFOC-20070502360

PATIENT
  Sex: Female
  Weight: 57 kg

DRUGS (25)
  1. REMICADE [Suspect]
     Route: 042
  2. REMICADE [Suspect]
     Route: 042
  3. REMICADE [Suspect]
     Route: 042
  4. REMICADE [Suspect]
     Route: 042
  5. REMICADE [Suspect]
     Route: 042
  6. REMICADE [Suspect]
     Route: 042
  7. REMICADE [Suspect]
     Route: 042
  8. REMICADE [Suspect]
     Route: 042
  9. REMICADE [Suspect]
     Route: 042
  10. REMICADE [Suspect]
     Indication: RHEUMATOID ARTHRITIS
     Route: 042
  11. ITRIZOLE [Suspect]
     Indication: ANTIFUNGAL PROPHYLAXIS
     Route: 048
  12. METHOTREXATE [Suspect]
     Route: 048
  13. METHOTREXATE [Suspect]
     Indication: RHEUMATOID ARTHRITIS
     Route: 048
  14. CYCLOSPORINE [Suspect]
     Indication: RHEUMATOID ARTHRITIS
     Route: 048
  15. METHYCOBAL [Suspect]
     Indication: NEUROPATHY PERIPHERAL
  16. PREDNISOLONE [Suspect]
     Indication: RHEUMATOID ARTHRITIS
     Route: 048
  17. CLINORIL [Suspect]
     Indication: RHEUMATOID ARTHRITIS
     Route: 048
  18. NORVASC [Suspect]
     Indication: HYPERTENSION
  19. ISCOTIN [Concomitant]
     Indication: ANTIBIOTIC PROPHYLAXIS
     Route: 048
  20. ADRENAL HORMONE PREPARATIONS [Concomitant]
     Indication: RHEUMATOID ARTHRITIS
     Route: 065
  21. FOLIAMIN [Concomitant]
     Route: 048
  22. ULGUT [Concomitant]
     Route: 048
  23. AMLODIPINE [Concomitant]
     Route: 048
  24. PROTECADIN [Concomitant]
     Route: 048
  25. BONALON [Concomitant]
     Route: 048

REACTIONS (6)
  - ABDOMINAL PAIN LOWER [None]
  - DIARRHOEA [None]
  - LISTERIA SEPSIS [None]
  - SHOCK [None]
  - THERAPEUTIC RESPONSE DECREASED [None]
  - URINARY TRACT INFECTION BACTERIAL [None]
